FAERS Safety Report 9329660 (Version 2)
Quarter: 2013Q3

REPORT INFORMATION
  Report Type: Spontaneous
  Country: BR (occurrence: BR)
  Receive Date: 20130604
  Receipt Date: 20130703
  Transmission Date: 20140515
  Serious: Yes (Hospitalization, Other)
  Sender: FDA-Public Use
  Company Number: PHHY2013BR054385

PATIENT
  Age: 65 Year
  Sex: Female

DRUGS (16)
  1. BUFFERIN [Suspect]
     Indication: COAGULOPATHY
     Dosage: 1 DF, QD
     Route: 048
  2. SOMALGIN [Suspect]
     Dates: start: 20130523
  3. PURAN T4 [Concomitant]
     Indication: THYROID DISORDER
     Dosage: 1 DF, QD
     Route: 048
  4. OMEPRAZOLE [Concomitant]
     Indication: GASTRITIS
     Dosage: 2 DF DAILY
     Route: 048
  5. OMEPRAZOLE [Concomitant]
     Indication: ULCER
  6. CALCORT [Concomitant]
     Indication: SYSTEMIC LUPUS ERYTHEMATOSUS
     Dosage: 1 DF IN THE MORNING
     Route: 048
  7. SUSTRATE [Concomitant]
     Indication: CHEST PAIN
     Dosage: 2 DF, QD
     Route: 048
  8. ATENOL [Concomitant]
     Indication: HYPERTENSION
     Dosage: 1 DF, QD
     Route: 048
  9. CITALOPRAM [Concomitant]
     Indication: DEPRESSION
     Dosage: 1.5 DF, QD
     Route: 048
  10. VASTAREL [Concomitant]
     Indication: CARDIAC DISORDER
     Dosage: 2 DF, UNK
     Route: 048
  11. DIOSMIN [Concomitant]
     Indication: THROMBOSIS
     Dosage: 1 DF, QD
     Route: 048
  12. DORZOLAMIDE HYDROCHLORIDE [Concomitant]
     Indication: ABNORMAL SENSATION IN EYE
     Dosage: 1 DRP, BID
  13. ROSUVASTATIN [Concomitant]
     Indication: BLOOD CHOLESTEROL INCREASED
     Dosage: 1 DF, QD (AT NIGHT)
     Route: 048
  14. PARACETAMOL [Concomitant]
     Indication: PAIN
     Dosage: 40 DRP (SPORADICALLY)
     Route: 048
  15. RIVOTRIL [Concomitant]
     Indication: DEPRESSION
     Dosage: 1.5 DF, QD
     Route: 048
  16. DOLAMIN FLEX [Concomitant]
     Indication: THROMBOSIS
     Dosage: 125 MG, UNK

REACTIONS (7)
  - Lupus-like syndrome [Recovered/Resolved]
  - Concomitant disease aggravated [Recovered/Resolved]
  - Thrombosis [Unknown]
  - Depression [Not Recovered/Not Resolved]
  - Diarrhoea [Recovered/Resolved]
  - Headache [Recovered/Resolved]
  - Abdominal pain upper [Recovered/Resolved]
